FAERS Safety Report 16008736 (Version 1)
Quarter: 2019Q1

REPORT INFORMATION
  Report Type: Spontaneous
  Country: US (occurrence: US)
  Receive Date: 20190225
  Receipt Date: 20190225
  Transmission Date: 20190418
  Serious: Yes (Hospitalization)
  Sender: FDA-Public Use
  Company Number: US-TEVA-2019-US-1016926

PATIENT
  Sex: Female
  Weight: 49.03 kg

DRUGS (1)
  1. WARFARIN [Suspect]
     Active Substance: WARFARIN
     Indication: CEREBROVASCULAR ACCIDENT
     Route: 065

REACTIONS (3)
  - Bladder disorder [Unknown]
  - Gastrointestinal disorder [Unknown]
  - Epistaxis [Unknown]
